FAERS Safety Report 10308880 (Version 1)
Quarter: 2014Q3

REPORT INFORMATION
  Report Type: Spontaneous
  Country: GB (occurrence: None)
  Receive Date: 20140714
  Receipt Date: 20140714
  Transmission Date: 20150326
  Serious: Yes (Hospitalization)
  Sender: FDA-Public Use
  Company Number: AUR-APL-2014-07320

PATIENT
  Age: 68 Year
  Sex: Female

DRUGS (15)
  1. OXYCODONE (OXYCODONE) [Concomitant]
     Active Substance: OXYCODONE
  2. QUININE (QUININE) [Concomitant]
     Active Substance: QUININE
  3. FUROSEMIDE (FUROSEMIDE) [Concomitant]
     Active Substance: FUROSEMIDE
  4. PREGABALIN (PREGABALIN) [Concomitant]
     Active Substance: PREGABALIN
  5. PARACETAMOL (PARACETAMOL) [Concomitant]
     Active Substance: ACETAMINOPHEN
  6. SENNA [Concomitant]
     Active Substance: SENNA LEAF\SENNOSIDES\SENNOSIDES A AND B
  7. TIOTROPIUM (TIOTROPIUM) [Concomitant]
  8. NOVORAPID [Concomitant]
     Active Substance: INSULIN ASPART
  9. CLARITHROMYCIN (CLARITHROMYCIN) [Suspect]
     Active Substance: CLARITHROMYCIN
     Indication: PRODUCT USED FOR UNKNOWN INDICATION
     Route: 048
  10. CARBOCISTEINE (CARBOCISTEINE) [Concomitant]
  11. LANTUS [Concomitant]
     Active Substance: INSULIN GLARGINE
  12. SERETIDE [Concomitant]
     Active Substance: FLUTICASONE FUROATE\SALMETEROL XINAFOATE
  13. MOVICOL (MACROGOL, POTASSIUM CHLORIDE, SODIUM BICARBONATE) [Concomitant]
  14. ASPIRIN (ACETYLSALICYLIC ACID) [Concomitant]
     Active Substance: ASPIRIN
  15. SALBUTAMOL (SALBUTAMOL) [Concomitant]
     Active Substance: ALBUTEROL

REACTIONS (2)
  - Myositis [None]
  - Rhabdomyolysis [None]
